FAERS Safety Report 8423226-9 (Version None)
Quarter: 2012Q2

REPORT INFORMATION
  Report Type: 
  Country: None (occurrence: None)
  Receive Date: 20120608
  Receipt Date: 20120531
  Transmission Date: 20120825
  Serious: Yes (Hospitalization)
  Sender: FDA-Public Use
  Company Number: US-JNJFOC-20120601751

PATIENT

DRUGS (2)
  1. CIMZIA [Concomitant]
     Dates: start: 20100514
  2. REMICADE [Suspect]
     Indication: INFLAMMATORY BOWEL DISEASE
     Route: 042
     Dates: start: 20070208

REACTIONS (1)
  - INFLAMMATORY BOWEL DISEASE [None]
